FAERS Safety Report 20713431 (Version 2)
Quarter: 2022Q2

REPORT INFORMATION
  Report Type: Report from Study
  Country: AU (occurrence: AU)
  Receive Date: 20220415
  Receipt Date: 20220510
  Transmission Date: 20220720
  Serious: Yes (Hospitalization, Other)
  Sender: FDA-Public Use
  Company Number: AU-AMGEN-AUSCT2022063420

PATIENT
  Age: 53 Year
  Sex: Male

DRUGS (8)
  1. DENOSUMAB [Suspect]
     Active Substance: DENOSUMAB
     Indication: Malignant melanoma
     Dosage: 120 MILLIGRAM
     Route: 058
     Dates: start: 20211217, end: 20220114
  2. NIVOLUMAB [Suspect]
     Active Substance: NIVOLUMAB
     Indication: Malignant melanoma
     Dosage: 87 MILLIGRAM
     Route: 042
     Dates: start: 20211217, end: 20220107
  3. IPILIMUMAB [Suspect]
     Active Substance: IPILIMUMAB
     Indication: Malignant melanoma
     Dosage: 262 MILLIGRAM
     Route: 042
     Dates: start: 20211217, end: 20220107
  4. CALCIUM CARBONATE [Concomitant]
     Active Substance: CALCIUM CARBONATE
     Indication: Supplementation therapy
     Dosage: 600 MILLIGRAM, QD
     Route: 048
     Dates: start: 20211217
  5. CHOLECALCIFEROL [Concomitant]
     Active Substance: CHOLECALCIFEROL
     Indication: Supplementation therapy
     Dosage: 0.012 MILLIGRAM, QD
     Route: 048
     Dates: start: 20211217
  6. TRIMETHOPRIM [Concomitant]
     Active Substance: TRIMETHOPRIM
     Indication: Prophylaxis
     Dosage: 160 MILLIGRAM, QD
     Route: 048
     Dates: start: 20220202
  7. SULFAMETHOXAZOLE [Concomitant]
     Active Substance: SULFAMETHOXAZOLE
     Indication: Prophylaxis
     Dosage: 800 MILLIGRAM, QD
     Route: 048
     Dates: start: 20220202
  8. METFORMIN [Concomitant]
     Active Substance: METFORMIN HYDROCHLORIDE
     Indication: Steroid diabetes
     Dosage: 500 MILLIGRAM, QD
     Route: 048
     Dates: start: 20220315

REACTIONS (1)
  - Drug-induced liver injury [Not Recovered/Not Resolved]

NARRATIVE: CASE EVENT DATE: 20220331
